FAERS Safety Report 4865330-8 (Version None)
Quarter: 2005Q4

REPORT INFORMATION
  Report Type: 
  Country: None (occurrence: None)
  Receive Date: 20051223
  Receipt Date: 20050518
  Transmission Date: 20060501
  Serious: Yes (Other)
  Sender: FDA-Public Use
  Company Number: US-AVENTIS-200514353US

PATIENT
  Sex: Male
  Weight: 76.21 kg

DRUGS (1)
  1. CARAC [Suspect]
     Indication: HYPERKERATOSIS
     Dosage: DOSE: UNK
     Dates: start: 20041214, end: 20050327

REACTIONS (13)
  - CHOKING [None]
  - CORNEAL DISORDER [None]
  - DRY EYE [None]
  - DRY MOUTH [None]
  - DRY SKIN [None]
  - DRY THROAT [None]
  - EYE IRRITATION [None]
  - HEART RATE DECREASED [None]
  - HYPOAESTHESIA [None]
  - NASAL DRYNESS [None]
  - PROSTATE INFECTION [None]
  - RETCHING [None]
  - TONGUE DRY [None]
